FAERS Safety Report 11874605 (Version 1)
Quarter: 2015Q4

REPORT INFORMATION
  Report Type: Spontaneous
  Country: US (occurrence: None)
  Receive Date: 20151228
  Receipt Date: 20151228
  Transmission Date: 20160305
  Serious: Yes (Life-Threatening, Disabling, Other)
  Sender: FDA-Public Use
  Company Number: None

PATIENT
  Age: 67 Year
  Sex: Female
  Weight: 72.58 kg

DRUGS (13)
  1. PRAVASTATIN [Suspect]
     Active Substance: PRAVASTATIN\PRAVASTATIN SODIUM
     Indication: BLOOD CHOLESTEROL INCREASED
  2. LAMICTAL [Concomitant]
     Active Substance: LAMOTRIGINE
  3. METFORMIN [Concomitant]
     Active Substance: METFORMIN HYDROCHLORIDE
  4. XOPENEX HFA [Concomitant]
     Active Substance: LEVALBUTEROL TARTRATE
  5. BENZONATE [Concomitant]
     Active Substance: BENZONATATE
  6. LISINOPRIL. [Concomitant]
     Active Substance: LISINOPRIL
  7. HYDROXYZINE HCL [Concomitant]
     Active Substance: HYDROXYZINE HYDROCHLORIDE
  8. MULTIPLE VITAMIN [Concomitant]
     Active Substance: VITAMINS
  9. ALBUTEROL NEBULIZER [Concomitant]
     Active Substance: ALBUTEROL
  10. PRILOSEC (GRD) [Concomitant]
  11. ASPIRIN MAGNESIUM. [Concomitant]
     Active Substance: ASPIRIN MAGNESIUM
  12. ADVAIR HFA [Concomitant]
     Active Substance: FLUTICASONE PROPIONATE\SALMETEROL XINAFOATE
  13. VALTREX [Concomitant]
     Active Substance: VALACYCLOVIR HYDROCHLORIDE

REACTIONS (8)
  - Blood glucose increased [None]
  - Pain in extremity [None]
  - Arthralgia [None]
  - Blood pressure increased [None]
  - Back pain [None]
  - Weight increased [None]
  - Hepatic enzyme increased [None]
  - Anger [None]
